FAERS Safety Report 23999167 (Version 2)
Quarter: 2024Q3

REPORT INFORMATION
  Report Type: Spontaneous
  Country: US (occurrence: US)
  Receive Date: 20240621
  Receipt Date: 20240708
  Transmission Date: 20241017
  Serious: Yes (Other)
  Sender: HIKMA
  Company Number: HIKM2404656

PATIENT
  Sex: Male

DRUGS (1)
  1. FLUPHENAZINE DECANOATE [Suspect]
     Active Substance: FLUPHENAZINE DECANOATE
     Indication: Product used for unknown indication
     Dosage: UNKNOWN
     Route: 065

REACTIONS (4)
  - Parkinson^s disease [Unknown]
  - Akathisia [Unknown]
  - Weight increased [Unknown]
  - Muscle twitching [Unknown]
